FAERS Safety Report 10241411 (Version 2)
Quarter: 2018Q4

REPORT INFORMATION
  Report Type: Spontaneous
  Country: NL (occurrence: NL)
  Receive Date: 20140617
  Receipt Date: 20181123
  Transmission Date: 20190204
  Serious: Yes (Hospitalization)
  Sender: FDA-Public Use
  Company Number: NL-TEVA-487726ISR

PATIENT
  Age: 28 Year
  Sex: Female

DRUGS (2)
  1. PROLUTON [Concomitant]
     Active Substance: HYDROXYPROGESTERONE CAPROATE
     Dosage: WEEKLY
     Route: 030
  2. NITROFURANTOIN. [Suspect]
     Active Substance: NITROFURANTOIN
     Indication: CYSTITIS
     Route: 065

REACTIONS (6)
  - Maternal exposure during pregnancy [Unknown]
  - Vitamin B12 deficiency [Recovered/Resolved]
  - Live birth [Unknown]
  - Proteinuria [Recovered/Resolved]
  - Haemolytic anaemia [Recovered/Resolved]
  - Folate deficiency [Recovered/Resolved]
